FAERS Safety Report 14365803 (Version 1)
Quarter: 2018Q1

REPORT INFORMATION
  Report Type: Spontaneous
  Country: KR (occurrence: KR)
  Receive Date: 20180109
  Receipt Date: 20180109
  Transmission Date: 20180509
  Serious: Yes (Other)
  Sender: FDA-Public Use
  Company Number: KR-RICON PHARMA, LLC-RIC201712-000775

PATIENT
  Age: 63 Year
  Sex: Male
  Weight: 75 kg

DRUGS (2)
  1. DICLOFENAC SODIUM. [Suspect]
     Active Substance: DICLOFENAC SODIUM
     Indication: NASOPHARYNGITIS
  2. BERAPROST [Concomitant]
     Active Substance: BERAPROST
     Indication: NECROSIS

REACTIONS (2)
  - Medication error [Unknown]
  - Necrosis [Not Recovered/Not Resolved]
